FAERS Safety Report 5284010-0 (Version None)
Quarter: 2007Q2

REPORT INFORMATION
  Report Type: 
  Country: None (occurrence: None)
  Receive Date: 20070402
  Receipt Date: 20070321
  Transmission Date: 20071010
  Serious: Yes (Other)
  Sender: FDA-Public Use
  Company Number: AU-PFIZER INC-2007023070

PATIENT

DRUGS (1)
  1. LIPITOR [Suspect]

REACTIONS (1)
  - LUPUS-LIKE SYNDROME [None]
